FAERS Safety Report 14233659 (Version 1)
Quarter: 2017Q4

REPORT INFORMATION
  Report Type: Spontaneous
  Country: US (occurrence: US)
  Receive Date: 20171129
  Receipt Date: 20171129
  Transmission Date: 20180321
  Serious: Yes (Death)
  Sender: FDA-Public Use
  Company Number: US-CHIESI USA INC-US-CHSI-17-00059

PATIENT

DRUGS (2)
  1. HEPARIN [Concomitant]
     Active Substance: HEPARIN SODIUM
     Indication: PRODUCT USED FOR UNKNOWN INDICATION
     Route: 041
  2. KENGREAL [Suspect]
     Active Substance: CANGRELOR
     Indication: ANTICOAGULANT THERAPY
     Route: 065
     Dates: start: 201711, end: 201711

REACTIONS (3)
  - Thrombosis [Fatal]
  - Off label use [Recovered/Resolved]
  - Myocardial infarction [Fatal]

NARRATIVE: CASE EVENT DATE: 201711
